FAERS Safety Report 5251292-0 (Version None)
Quarter: 2007Q1

REPORT INFORMATION
  Report Type: 
  Country: None (occurrence: None)
  Receive Date: 20070228
  Receipt Date: 20061227
  Transmission Date: 20070707
  Serious: No
  Sender: FDA-Public Use
  Company Number: US-GLAXOSMITHKLINE-A0632944A

PATIENT

DRUGS (1)
  1. LAMICTAL [Suspect]
     Indication: DRUG USE FOR UNKNOWN INDICATION
     Route: 048

REACTIONS (15)
  - ABASIA [None]
  - CHEILITIS [None]
  - DISABILITY [None]
  - EYE DISCHARGE [None]
  - EYE INFECTION [None]
  - EYE SWELLING [None]
  - HEAD DISCOMFORT [None]
  - HYPERAESTHESIA [None]
  - HYPERSENSITIVITY [None]
  - LIP EXFOLIATION [None]
  - LIP HAEMORRHAGE [None]
  - LIP SWELLING [None]
  - PRURITUS [None]
  - RASH [None]
  - THROAT TIGHTNESS [None]
